FAERS Safety Report 7935842-9 (Version None)
Quarter: 2011Q4

REPORT INFORMATION
  Report Type: 
  Country: None (occurrence: None)
  Receive Date: 20111121
  Receipt Date: 20111025
  Transmission Date: 20120403
  Serious: Yes (Other)
  Sender: FDA-Public Use
  Company Number: TOR 2011-0049

PATIENT
  Age: 49 Year
  Sex: Female

DRUGS (3)
  1. FARESTON [Suspect]
     Indication: BREAST CANCER
     Dosage: 40 MG ORAL
     Route: 048
     Dates: start: 20100914
  2. ETODOLAC [Concomitant]
  3. ISALON [Concomitant]

REACTIONS (1)
  - TOXIC SKIN ERUPTION [None]
